FAERS Safety Report 19942736 (Version 2)
Quarter: 2022Q1

REPORT INFORMATION
  Report Type: Spontaneous
  Country: US (occurrence: US)
  Receive Date: 20211011
  Receipt Date: 20220112
  Transmission Date: 20220423
  Serious: Yes (Other)
  Sender: FDA-Public Use
  Company Number: US-ENDO PHARMACEUTICALS INC-2021-012171

PATIENT
  Age: 35 Year
  Sex: Female
  Weight: 61.224 kg

DRUGS (2)
  1. QWO [Suspect]
     Active Substance: COLLAGENASE CLOSTRIDIUM HISTOLYTICUM-AAES
     Indication: Cellulite
     Dosage: 0.92 MG, UNKNOWN; SECOND TREATMENT, 12 INJECTIONS
     Route: 065
     Dates: start: 20211004
  2. QWO [Suspect]
     Active Substance: COLLAGENASE CLOSTRIDIUM HISTOLYTICUM-AAES
     Dosage: 0.92 MG, UNKNOWN; FIRST TREATMENT; 12 INJECTIONS
     Route: 065
     Dates: start: 2021

REACTIONS (6)
  - Dyspnoea [Recovered/Resolved]
  - Chest pain [Recovered/Resolved]
  - Hypersensitivity [Recovered/Resolved]
  - Dysphonia [Recovered/Resolved]
  - Tenderness [Recovered/Resolved]
  - Erythema [Recovered/Resolved]

NARRATIVE: CASE EVENT DATE: 20211004
